FAERS Safety Report 11257016 (Version 2)
Quarter: 2016Q3

REPORT INFORMATION
  Report Type: Spontaneous
  Country: US (occurrence: US)
  Receive Date: 20150709
  Receipt Date: 20160706
  Transmission Date: 20161109
  Serious: No
  Sender: FDA-Public Use
  Company Number: US-PURDUE-USA-2014-0115793

PATIENT
  Age: 44 Year
  Sex: Female

DRUGS (3)
  1. BUTRANS [Suspect]
     Active Substance: BUPRENORPHINE
     Indication: MIGRAINE
     Dosage: 20 MCG/HR, WEEKLY
     Route: 062
     Dates: start: 2014
  2. BUTRANS [Suspect]
     Active Substance: BUPRENORPHINE
     Dosage: 20 MCG/HR, WEEKLY
     Route: 062
     Dates: start: 201403
  3. BUTRANS [Suspect]
     Active Substance: BUPRENORPHINE
     Indication: NEUROPATHY PERIPHERAL
     Dosage: 20 MCG/HR, WEEKLY
     Route: 062
     Dates: start: 201403

REACTIONS (8)
  - Product adhesion issue [Unknown]
  - Product contamination [Unknown]
  - Pain [Unknown]
  - Drug ineffective [Unknown]
  - Product odour abnormal [Unknown]
  - Pruritus [Not Recovered/Not Resolved]
  - Application site erythema [Unknown]
  - Application site pruritus [None]

NARRATIVE: CASE EVENT DATE: 201506
